FAERS Safety Report 7415397-8 (Version None)
Quarter: 2011Q2

REPORT INFORMATION
  Report Type: 
  Country: None (occurrence: None)
  Receive Date: 20110414
  Receipt Date: 20110331
  Transmission Date: 20111010
  Serious: Yes (Hospitalization)
  Sender: FDA-Public Use
  Company Number: B0712504A

PATIENT
  Age: 78 Year
  Sex: Female

DRUGS (2)
  1. RITMONORM [Suspect]
     Indication: EXTRASYSTOLES
     Dosage: 300MG TWICE PER DAY
     Route: 065
  2. LORATADINE [Concomitant]

REACTIONS (6)
  - CARDIAC FIBRILLATION [None]
  - MALAISE [None]
  - HYPERTENSION [None]
  - NERVOUSNESS [None]
  - EXTRASYSTOLES [None]
  - ARRHYTHMIA [None]
